FAERS Safety Report 8243710-0 (Version None)
Quarter: 2012Q1

REPORT INFORMATION
  Report Type: 
  Country: None (occurrence: None)
  Receive Date: 20120329
  Receipt Date: 20110309
  Transmission Date: 20120608
  Serious: No
  Sender: FDA-Public Use
  Company Number: US-MYLANLABS-2011S1004561

PATIENT
  Sex: Female

DRUGS (11)
  1. EMSAM [Suspect]
     Dosage: CHANGED QDAY
     Route: 062
     Dates: end: 20100101
  2. GABAPENTIN [Concomitant]
  3. EMSAM [Suspect]
     Indication: DEPRESSION
     Dosage: CHANGED QDAY
     Route: 062
     Dates: start: 20110215
  4. EMSAM [Suspect]
     Dosage: CHANGED QDAY
     Route: 062
     Dates: start: 20070101, end: 20100101
  5. EMSAM [Suspect]
     Dosage: CHANGED QDAY
     Route: 062
     Dates: end: 20100101
  6. ATIVAN [Concomitant]
     Indication: ANXIETY
  7. EMSAM [Suspect]
     Indication: ANXIETY
     Dosage: CHANGED QDAY
     Route: 062
     Dates: start: 20110215
  8. EMSAM [Suspect]
     Dosage: CHANGED QDAY
     Route: 062
     Dates: start: 20100101, end: 20110214
  9. PROTONIX [Concomitant]
     Indication: GASTROOESOPHAGEAL REFLUX DISEASE
  10. EMSAM [Suspect]
     Dosage: CHANGED QDAY
     Route: 062
     Dates: start: 20070101, end: 20100101
  11. EMSAM [Suspect]
     Dosage: CHANGED QDAY
     Route: 062
     Dates: start: 20100101, end: 20110214

REACTIONS (7)
  - TREMOR [None]
  - TEMPERATURE INTOLERANCE [None]
  - ANXIETY [None]
  - NECK PAIN [None]
  - HEADACHE [None]
  - FOOD INTERACTION [None]
  - BLOOD PRESSURE INCREASED [None]
